FAERS Safety Report 25460211 (Version 3)
Quarter: 2025Q3

REPORT INFORMATION
  Report Type: Spontaneous
  Country: US (occurrence: US)
  Receive Date: 20250620
  Receipt Date: 20250825
  Transmission Date: 20251020
  Serious: Yes (Hospitalization, Other)
  Sender: SANOFI AVENTIS
  Company Number: US-SA-2025SA173396

PATIENT
  Age: 58 Year
  Sex: Male
  Weight: 121.09 kg

DRUGS (1)
  1. DUPIXENT [Suspect]
     Active Substance: DUPILUMAB
     Indication: Dermatitis atopic
     Dosage: 300 MG, QOW
     Route: 058
     Dates: start: 202504, end: 202505

REACTIONS (2)
  - Respiratory failure [Unknown]
  - Rash [Unknown]

NARRATIVE: CASE EVENT DATE: 20250101
